FAERS Safety Report 7690885-8 (Version None)
Quarter: 2011Q3

REPORT INFORMATION
  Report Type: 
  Country: None (occurrence: None)
  Receive Date: 20110818
  Receipt Date: 20110818
  Transmission Date: 20111222
  Serious: Yes (Life-Threatening, Hospitalization)
  Sender: FDA-Public Use
  Company Number: None

PATIENT
  Age: 91 Year
  Sex: Female
  Weight: 62.1 kg

DRUGS (7)
  1. AZACITIDINE [Concomitant]
  2. LASIX [Concomitant]
  3. TYLENOL-500 [Concomitant]
  4. BENADRYL [Concomitant]
  5. HYDROCORTISONE [Concomitant]
  6. ARANESP [Concomitant]
  7. NEUPOGEN [Suspect]
     Indication: MYELODYSPLASTIC SYNDROME
     Dosage: 300 MCG
     Route: 058
     Dates: start: 20110815, end: 20110815

REACTIONS (2)
  - BLOOD PRESSURE SYSTOLIC INCREASED [None]
  - DYSPNOEA [None]
